FAERS Safety Report 15203237 (Version 1)
Quarter: 2018Q4

REPORT INFORMATION
  Report Type: Spontaneous
  Country: FR (occurrence: FR)
  Receive Date: 20180726
  Receipt Date: 20180726
  Transmission Date: 20190204
  Serious: Yes (Other)
  Sender: FDA-Public Use
  Company Number: FR-TEVA-2018-FR-900937

PATIENT
  Age: 54 Year
  Sex: Male
  Weight: 93 kg

DRUGS (3)
  1. JINARC 15 MG, COMPRIM?, JINARC 45 MG, COMPRIM? [Suspect]
     Active Substance: TOLVAPTAN
     Indication: CONGENITAL CYSTIC KIDNEY DISEASE
     Dosage: 60 MILLIGRAM DAILY;
     Route: 048
     Dates: start: 20171211, end: 20180319
  2. IRBESARTAN. [Suspect]
     Active Substance: IRBESARTAN
     Indication: CONGENITAL CYSTIC KIDNEY DISEASE
     Dosage: 150 MILLIGRAM DAILY;
     Route: 048
     Dates: start: 20170731
  3. JINARC 15 MG, COMPRIM?, JINARC 45 MG, COMPRIM? [Suspect]
     Active Substance: TOLVAPTAN
     Indication: CONGENITAL CYSTIC KIDNEY DISEASE
     Route: 048
     Dates: start: 20171211, end: 20180319

REACTIONS (2)
  - Renal impairment [Not Recovered/Not Resolved]
  - Creatinine renal clearance increased [Recovering/Resolving]

NARRATIVE: CASE EVENT DATE: 20171226
